FAERS Safety Report 8119951-X (Version None)
Quarter: 2012Q1

REPORT INFORMATION
  Report Type: 
  Country: None (occurrence: None)
  Receive Date: 20120206
  Receipt Date: 20120206
  Transmission Date: 20120608
  Serious: Yes (Life-Threatening)
  Sender: FDA-Public Use
  Company Number: None

PATIENT
  Sex: Female
  Weight: 129.2752 kg

DRUGS (1)
  1. TORSEMIDE [Suspect]
     Indication: FLUID RETENTION
     Dosage: 20MG 1 P/DAY
     Dates: start: 20111114, end: 20111227

REACTIONS (1)
  - DYSPNOEA [None]
